FAERS Safety Report 8008398-2 (Version None)
Quarter: 2011Q4

REPORT INFORMATION
  Report Type: 
  Country: None (occurrence: None)
  Receive Date: 20111227
  Receipt Date: 20111221
  Transmission Date: 20120403
  Serious: Yes (Other)
  Sender: FDA-Public Use
  Company Number: US-ROCHE-803163

PATIENT
  Sex: Female
  Weight: 56.75 kg

DRUGS (2)
  1. ACCUTANE [Suspect]
     Dosage: OR //1986
     Route: 065
  2. ACCUTANE [Suspect]
     Indication: ACNE CYSTIC
     Route: 065
     Dates: start: 19820101, end: 19840101

REACTIONS (3)
  - SUICIDAL IDEATION [None]
  - DEPRESSION [None]
  - COLITIS ULCERATIVE [None]
